FAERS Safety Report 12414090 (Version 1)
Quarter: 2016Q2

REPORT INFORMATION
  Report Type: Spontaneous
  Country: US (occurrence: US)
  Receive Date: 20160527
  Receipt Date: 20160527
  Transmission Date: 20160815
  Serious: No
  Sender: FDA-Public Use
  Company Number: US-PRESTIUM-2015RN000077

PATIENT
  Sex: Female

DRUGS (1)
  1. ZONALON [Suspect]
     Active Substance: DOXEPIN HYDROCHLORIDE
     Indication: PRURITUS
     Dosage: 5 %, UNK
     Route: 061
     Dates: start: 20151014

REACTIONS (8)
  - Pain of skin [Unknown]
  - Skin oedema [Unknown]
  - Skin discolouration [Not Recovered/Not Resolved]
  - Skin burning sensation [Unknown]
  - Pruritus [Not Recovered/Not Resolved]
  - Nausea [Unknown]
  - Paraesthesia [Unknown]
  - Erythema [Unknown]

NARRATIVE: CASE EVENT DATE: 20151014
